FAERS Safety Report 6901587-7 (Version None)
Quarter: 2010Q3

REPORT INFORMATION
  Report Type: 
  Country: None (occurrence: None)
  Receive Date: 20100803
  Receipt Date: 20100726
  Transmission Date: 20110219
  Serious: Yes (Other)
  Sender: FDA-Public Use
  Company Number: US-AMGEN-KDL421954

PATIENT
  Sex: Female
  Weight: 63.6 kg

DRUGS (4)
  1. PROCRIT [Suspect]
     Indication: MYELODYSPLASTIC SYNDROME
     Route: 058
     Dates: start: 20100324, end: 20100706
  2. FOSAMAX [Concomitant]
     Dates: start: 20100301
  3. ASPIRIN [Concomitant]
  4. VITAMIN B-12 [Concomitant]
     Route: 030

REACTIONS (2)
  - DRUG INEFFECTIVE [None]
  - MYELODYSPLASTIC SYNDROME [None]
